FAERS Safety Report 17636041 (Version 1)
Quarter: 2020Q2

REPORT INFORMATION
  Report Type: Spontaneous
  Country: FI (occurrence: FI)
  Receive Date: 20200407
  Receipt Date: 20200407
  Transmission Date: 20200713
  Serious: Yes (Hospitalization)
  Sender: FDA-Public Use
  Company Number: FI-AUROBINDO-AUR-APL-2020-016494

PATIENT
  Age: 65 Year
  Sex: Male

DRUGS (7)
  1. VALPROATE [Suspect]
     Active Substance: VALPROIC ACID
     Indication: PSYCHOTHERAPY
     Dosage: UNK (THERAPEUTIC DOSES)
     Route: 065
  2. LEPONEX [Suspect]
     Active Substance: CLOZAPINE
     Indication: SLEEP DISORDER
     Dosage: UNK
     Route: 065
  3. LEPONEX [Suspect]
     Active Substance: CLOZAPINE
     Indication: DELIRIUM
  4. LITHIUM. [Suspect]
     Active Substance: LITHIUM
     Indication: PSYCHOTHERAPY
     Dosage: UNK (THERAPEUTIC DOSES)
     Route: 065
  5. OLANZAPINE. [Suspect]
     Active Substance: OLANZAPINE
     Indication: PSYCHOTHERAPY
     Dosage: 20 MILLIGRAM (IN THE EVENINGS)
     Route: 065
  6. LEPONEX [Suspect]
     Active Substance: CLOZAPINE
     Indication: MANIA
     Dosage: UNK
     Route: 065
     Dates: start: 20200129
  7. LEPONEX [Suspect]
     Active Substance: CLOZAPINE
     Indication: BIPOLAR DISORDER

REACTIONS (7)
  - Diarrhoea [Recovered/Resolved]
  - Off label use [Unknown]
  - Hospitalisation [Unknown]
  - Eosinophilia [Recovered/Resolved]
  - Myalgia [Unknown]
  - Pulmonary pain [Unknown]
  - White blood cell count increased [Unknown]

NARRATIVE: CASE EVENT DATE: 202002
